FAERS Safety Report 8692421 (Version 2)
Quarter: 2012Q4

REPORT INFORMATION
  Report Type: 
  Country: US (occurrence: US)
  Receive Date: 20120730
  Receipt Date: 20121112
  Transmission Date: 20130627
  Serious: Yes (Other)
  Sender: FDA-Public Use
  Company Number: US-GILEAD-2012-0058794

PATIENT
  Sex: Female

DRUGS (3)
  1. LETAIRIS [Suspect]
     Indication: PULMONARY HYPERTENSION
     Dosage: 10 mg, UNK
     Route: 048
     Dates: start: 20111130
  2. LETAIRIS [Suspect]
     Indication: SYSTEMIC LUPUS ERYTHEMATOSUS
     Dosage: 5 UNK, UNK
     Route: 048
  3. LETAIRIS [Suspect]
     Dosage: 10 mg, UNK
     Route: 048

REACTIONS (4)
  - Atrial fibrillation [Unknown]
  - Heat illness [Unknown]
  - Swelling [Unknown]
  - Abdominal pain upper [Unknown]
